FAERS Safety Report 12372346 (Version 2)
Quarter: 2016Q2

REPORT INFORMATION
  Report Type: Spontaneous
  Country: JP (occurrence: JP)
  Receive Date: 20160516
  Receipt Date: 20160519
  Transmission Date: 20160815
  Serious: Yes (Other)
  Sender: FDA-Public Use
  Company Number: JP-PFIZER INC-2016253836

PATIENT
  Age: 34 Year
  Sex: Female

DRUGS (2)
  1. GABAPEN [Suspect]
     Active Substance: GABAPENTIN
     Route: 048
  2. LOXONIN [Suspect]
     Active Substance: LOXOPROFEN SODIUM
     Route: 048

REACTIONS (3)
  - Vitreous floaters [Unknown]
  - Seizure [Unknown]
  - Anticonvulsant drug level decreased [Unknown]
